FAERS Safety Report 13168879 (Version 3)
Quarter: 2017Q1

REPORT INFORMATION
  Report Type: Spontaneous
  Country: US (occurrence: US)
  Receive Date: 20170131
  Receipt Date: 20170329
  Transmission Date: 20170428
  Serious: No
  Sender: FDA-Public Use
  Company Number: US-ELI_LILLY_AND_COMPANY-US201605008979

PATIENT
  Age: 68 Year
  Sex: Male

DRUGS (5)
  1. HUMALOG KWIKPEN [Suspect]
     Active Substance: INSULIN LISPRO
     Dosage: 18 U, QID
     Route: 065
     Dates: start: 20170305
  2. LANTUS [Concomitant]
     Active Substance: INSULIN GLARGINE
  3. HUMALOG KWIKPEN [Suspect]
     Active Substance: INSULIN LISPRO
     Indication: TYPE 2 DIABETES MELLITUS
     Dosage: 10 U, QID
     Route: 065
     Dates: start: 20160517
  4. HUMALOG KWIKPEN [Suspect]
     Active Substance: INSULIN LISPRO
     Indication: TYPE 2 DIABETES MELLITUS
     Dosage: 40 U, OTHER
     Dates: start: 201501
  5. HUMALOG KWIKPEN [Suspect]
     Active Substance: INSULIN LISPRO
     Dosage: 10 U, QID
     Route: 065

REACTIONS (7)
  - Discomfort [Not Recovered/Not Resolved]
  - Drug dose omission [Unknown]
  - Blood glucose increased [Not Recovered/Not Resolved]
  - Injection site pain [Recovered/Resolved]
  - Drug ineffective [Unknown]
  - Blood glucose increased [Recovering/Resolving]
  - Injection site pain [Not Recovered/Not Resolved]

NARRATIVE: CASE EVENT DATE: 20170123
